FAERS Safety Report 12082214 (Version 3)
Quarter: 2016Q2

REPORT INFORMATION
  Report Type: Report from Study
  Country: US (occurrence: US)
  Receive Date: 20160217
  Receipt Date: 20160405
  Transmission Date: 20160815
  Serious: Yes (Death, Hospitalization, Other)
  Sender: FDA-Public Use
  Company Number: US-AMGEN-USASL2016018063

PATIENT
  Age: 67 Year
  Sex: Male
  Weight: 101.13 kg

DRUGS (5)
  1. CALCIUM [Concomitant]
     Active Substance: CALCIUM
     Indication: PROPHYLAXIS
     Route: 065
  2. PROLIA [Suspect]
     Active Substance: DENOSUMAB
     Indication: PROSTATE CANCER
  3. LUPRON [Concomitant]
     Active Substance: LEUPROLIDE ACETATE
  4. VITAMIN D                          /00107901/ [Concomitant]
     Active Substance: ERGOCALCIFEROL
     Indication: PROPHYLAXIS
     Route: 065
  5. PROLIA [Suspect]
     Active Substance: DENOSUMAB
     Indication: BONE LOSS
     Dosage: UNK
     Route: 065
     Dates: start: 201412, end: 201504

REACTIONS (7)
  - Death [Fatal]
  - Lymphadenopathy mediastinal [Unknown]
  - Lung cancer metastatic [Unknown]
  - Hyperhidrosis [Unknown]
  - Bone lesion [Unknown]
  - Hot flush [Unknown]
  - Atrial fibrillation [Unknown]

NARRATIVE: CASE EVENT DATE: 2015
